FAERS Safety Report 6388601-5 (Version None)
Quarter: 2009Q4

REPORT INFORMATION
  Report Type: 
  Country: None (occurrence: None)
  Receive Date: 20091005
  Receipt Date: 20090924
  Transmission Date: 20100525
  Serious: Yes (Hospitalization)
  Sender: FDA-Public Use
  Company Number: GB-ASTRAZENECA-2009SE12384

PATIENT
  Sex: Male

DRUGS (2)
  1. SYMBICORT [Suspect]
     Indication: ASTHMA
     Dosage: 200/6 MCG, NEW PACK
     Route: 055
     Dates: start: 20060601, end: 20090901
  2. SYMBICORT [Suspect]
     Indication: CHRONIC OBSTRUCTIVE PULMONARY DISEASE
     Dosage: 200/6 MCG, NEW PACK
     Route: 055
     Dates: start: 20060601, end: 20090901

REACTIONS (1)
  - HYPERSENSITIVITY [None]
